FAERS Safety Report 4760190-8 (Version None)
Quarter: 2005Q3

REPORT INFORMATION
  Report Type: 
  Country: None (occurrence: None)
  Receive Date: 20050831
  Receipt Date: 20050831
  Transmission Date: 20060218
  Serious: No
  Sender: FDA-Public Use
  Company Number: None

PATIENT
  Age: 16 Year
  Sex: Male
  Weight: 70 kg

DRUGS (7)
  1. DILANTIN [Suspect]
     Dosage: 300 MG BID PO
     Route: 048
     Dates: start: 20050406, end: 20050423
  2. VALPROIC ACID [Suspect]
     Dosage: 500 MG Q6H PO
     Route: 048
     Dates: start: 20050423, end: 20050425
  3. DALTEPARIN [Concomitant]
  4. IRON [Concomitant]
  5. INSULIN [Concomitant]
  6. NYSTATIN [Concomitant]
  7. PSYLLIUM [Concomitant]

REACTIONS (4)
  - EOSINOPHIL COUNT INCREASED [None]
  - PYREXIA [None]
  - RASH MACULO-PAPULAR [None]
  - SUBARACHNOID HAEMORRHAGE [None]
